FAERS Safety Report 7302741-5 (Version None)
Quarter: 2011Q1

REPORT INFORMATION
  Report Type: 
  Country: None (occurrence: None)
  Receive Date: 20110218
  Receipt Date: 20110214
  Transmission Date: 20110831
  Serious: Yes (Other)
  Sender: FDA-Public Use
  Company Number: US-US-EMD SERONO, INC.-7011041

PATIENT
  Sex: Female

DRUGS (6)
  1. ASPIRIN [Concomitant]
  2. AMPYRA [Concomitant]
  3. PERCOCET [Concomitant]
     Indication: PREMEDICATION
  4. VIMPAT [Concomitant]
     Indication: CONVULSION
     Dates: start: 20060101
  5. SOMA [Concomitant]
  6. REBIF [Suspect]
     Indication: MULTIPLE SCLEROSIS
     Route: 058
     Dates: start: 20100524

REACTIONS (4)
  - STRESS [None]
  - CONVULSION [None]
  - NASOPHARYNGITIS [None]
  - PAIN [None]
